FAERS Safety Report 6150579-7 (Version None)
Quarter: 2009Q2

REPORT INFORMATION
  Report Type: 
  Country: None (occurrence: None)
  Receive Date: 20090407
  Receipt Date: 20090407
  Transmission Date: 20091009
  Serious: Yes (Other)
  Sender: FDA-Public Use
  Company Number: None

PATIENT
  Age: 53 Year
  Sex: Female
  Weight: 85.2762 kg

DRUGS (2)
  1. LAMOTRIGINE [Suspect]
     Indication: BIPOLAR DISORDER
     Dosage: 300MG DAILY PO
     Route: 048
     Dates: start: 20090317, end: 20090406
  2. LAMOTRIGINE [Suspect]
     Indication: MIGRAINE PROPHYLAXIS
     Dosage: 300MG DAILY PO
     Route: 048
     Dates: start: 20090317, end: 20090406

REACTIONS (3)
  - CONDITION AGGRAVATED [None]
  - DRUG INEFFECTIVE [None]
  - PRODUCT QUALITY ISSUE [None]
